FAERS Safety Report 8880929 (Version 1)
Quarter: 2012Q4

REPORT INFORMATION
  Report Type: 
  Country: CN (occurrence: CN)
  Receive Date: 20121101
  Receipt Date: 20121101
  Transmission Date: 20130627
  Serious: Yes (Hospitalization)
  Sender: FDA-Public Use
  Company Number: CN-BRISTOL-MYERS SQUIBB COMPANY-17060930

PATIENT
  Age: 49 Year
  Sex: Female

DRUGS (2)
  1. PACLITAXEL [Suspect]
     Indication: BREAST CANCER
     Dosage: inj
Also recieved on 18jun10 + 2Jul10
     Dates: start: 20100601, end: 20100702
  2. DOXORUBICIN HCL LIPOSOME [Suspect]
     Indication: BREAST CANCER
     Dosage: Also recieved on 18jun10 + 2Jul10
Doxorubicin liposomal injection
     Route: 042
     Dates: start: 20100601, end: 20100702

REACTIONS (1)
  - Palmar-plantar erythrodysaesthesia syndrome [Recovered/Resolved]
